FAERS Safety Report 17016707 (Version 3)
Quarter: 2021Q1

REPORT INFORMATION
  Report Type: Other
  Country: FR (occurrence: FR)
  Receive Date: 20191111
  Receipt Date: 20210205
  Transmission Date: 20210419
  Serious: Yes (Death, Life-Threatening, Hospitalization, Other)
  Sender: FDA-Public Use
  Company Number: FR-ASPEN-GLO2019FR011688

PATIENT

DRUGS (3)
  1. BUSULFAN. [Suspect]
     Active Substance: BUSULFAN
     Indication: BONE MARROW TRANSPLANT
     Dosage: UNK
     Route: 041
     Dates: start: 2011
  2. CYCLOPHOSPHAMIDE. [Suspect]
     Active Substance: CYCLOPHOSPHAMIDE
     Indication: BONE MARROW TRANSPLANT
     Dosage: UNK
     Route: 041
     Dates: start: 2011
  3. FLUDARABINE PHOSPHATE. [Suspect]
     Active Substance: FLUDARABINE PHOSPHATE
     Indication: BONE MARROW TRANSPLANT
     Dosage: UNK
     Route: 041
     Dates: start: 2011

REACTIONS (6)
  - Respiratory failure [Not Recovered/Not Resolved]
  - Lung transplant [Not Recovered/Not Resolved]
  - Interstitial lung disease [Not Recovered/Not Resolved]
  - Pulmonary hypertension [Not Recovered/Not Resolved]
  - Pleural thickening [Not Recovered/Not Resolved]
  - Interstitial lung disease [Not Recovered/Not Resolved]

NARRATIVE: CASE EVENT DATE: 2017
